FAERS Safety Report 20505968 (Version 1)
Quarter: 2022Q1

REPORT INFORMATION
  Report Type: Spontaneous
  Country: US (occurrence: None)
  Receive Date: 20220221
  Receipt Date: 20220221
  Transmission Date: 20220423
  Serious: Yes (Other)
  Sender: FDA-Public Use
  Company Number: None

PATIENT
  Age: 26 Year
  Sex: Female
  Weight: 65.25 kg

DRUGS (1)
  1. PHEXXI [Suspect]
     Active Substance: CITRIC ACID MONOHYDRATE\LACTIC ACID, L-\POTASSIUM BITARTRATE
     Indication: Contraception
     Dosage: OTHER FREQUENCY : RIGHT BEFORE SEX;?
     Route: 067

REACTIONS (3)
  - Oligomenorrhoea [None]
  - Therapy cessation [None]
  - Menstruation irregular [None]

NARRATIVE: CASE EVENT DATE: 20220218
